FAERS Safety Report 10049625 (Version 1)
Quarter: 2014Q2

REPORT INFORMATION
  Report Type: Report from Study
  Country: AU (occurrence: AU)
  Receive Date: 20140401
  Receipt Date: 20140401
  Transmission Date: 20141212
  Serious: Yes (Other)
  Sender: FDA-Public Use
  Company Number: PHHY2014AU038378

PATIENT
  Age: 79 Year
  Sex: Female

DRUGS (2)
  1. ACLASTA [Suspect]
     Dosage: 5 MG, UNK
     Route: 042
     Dates: start: 20100629
  2. ACLASTA [Suspect]
     Dosage: UNK UKN, UNK
     Route: 042
     Dates: start: 20140327

REACTIONS (5)
  - Radius fracture [Recovering/Resolving]
  - Fall [Recovering/Resolving]
  - Poor venous access [Recovering/Resolving]
  - Device difficult to use [Recovering/Resolving]
  - Influenza like illness [Recovering/Resolving]
